FAERS Safety Report 25505440 (Version 1)
Quarter: 2025Q3

REPORT INFORMATION
  Report Type: Spontaneous
  Country: EU (occurrence: EU)
  Receive Date: 20250702
  Receipt Date: 20250702
  Transmission Date: 20251021
  Serious: Yes (Other)
  Sender: AMGEN
  Company Number: EU-AMGEN-ITASP2025127485

PATIENT
  Age: 60 Year
  Sex: Male

DRUGS (8)
  1. VECTIBIX [Suspect]
     Active Substance: PANITUMUMAB
     Indication: Adenocarcinoma of colon
     Route: 040
     Dates: start: 202306, end: 202310
  2. VECTIBIX [Suspect]
     Active Substance: PANITUMUMAB
     Route: 040
     Dates: start: 202501
  3. LEUCOVORIN [Concomitant]
     Active Substance: LEUCOVORIN\LEUCOVORIN CALCIUM
     Indication: Adenocarcinoma metastatic
     Route: 065
     Dates: start: 202306
  4. FLUOROURACIL [Concomitant]
     Active Substance: FLUOROURACIL
     Indication: Adenocarcinoma metastatic
     Route: 065
     Dates: start: 202306
  5. OXALIPLATIN [Concomitant]
     Active Substance: OXALIPLATIN
     Indication: Adenocarcinoma metastatic
     Route: 065
     Dates: start: 202306
  6. IRINOTECAN [Concomitant]
     Active Substance: IRINOTECAN
     Indication: Adenocarcinoma metastatic
     Route: 065
     Dates: start: 202404
  7. TIPIRACIL [Concomitant]
     Active Substance: TIPIRACIL
     Indication: Adenocarcinoma metastatic
     Dates: start: 202412
  8. TRIFLURIDINE [Concomitant]
     Active Substance: TRIFLURIDINE
     Indication: Adenocarcinoma metastatic
     Dates: start: 202412

REACTIONS (5)
  - Rectal haemorrhage [Unknown]
  - Idiopathic pulmonary fibrosis [Unknown]
  - Adenocarcinoma of colon [Recovered/Resolved]
  - Pain [Unknown]
  - Therapy partial responder [Unknown]

NARRATIVE: CASE EVENT DATE: 20230101
